FAERS Safety Report 15684133 (Version 3)
Quarter: 2019Q1

REPORT INFORMATION
  Report Type: Not Available
  Country: US (occurrence: US)
  Receive Date: 20181204
  Receipt Date: 20190306
  Transmission Date: 20190417
  Serious: No
  Sender: FDA-Public Use
  Company Number: US-NEUROCRINE BIOSCIENCES INC.-2018NBI03412

PATIENT
  Age: 18 Year
  Sex: Female

DRUGS (7)
  1. INGREZZA [Suspect]
     Active Substance: VALBENAZINE
     Indication: TARDIVE DYSKINESIA
     Dates: start: 201811, end: 201811
  2. ABILIFY [Suspect]
     Active Substance: ARIPIPRAZOLE
     Indication: MOOD ALTERED
     Dates: end: 20181123
  3. INGREZZA [Suspect]
     Active Substance: VALBENAZINE
     Dates: start: 201811, end: 20181123
  4. LITHIUM. [Concomitant]
     Active Substance: LITHIUM
     Indication: MOOD ALTERED
  5. LITHIUM. [Concomitant]
     Active Substance: LITHIUM
  6. LITHIUM. [Concomitant]
     Active Substance: LITHIUM
  7. LAMICTAL [Concomitant]
     Active Substance: LAMOTRIGINE
     Indication: MOOD ALTERED

REACTIONS (2)
  - Drug ineffective [None]
  - Tardive dyskinesia [Recovered/Resolved]

NARRATIVE: CASE EVENT DATE: 201811
